FAERS Safety Report 5130749-7 (Version None)
Quarter: 2006Q4

REPORT INFORMATION
  Report Type: 
  Country: None (occurrence: None)
  Receive Date: 20061017
  Receipt Date: 20061017
  Transmission Date: 20070319
  Serious: No
  Sender: FDA-Public Use
  Company Number: None

PATIENT
  Age: 19 Year
  Sex: Male
  Weight: 93.18 kg

DRUGS (2)
  1. VANCOMYCIN [Suspect]
     Indication: ABSCESS
     Dosage: 1000MG EVERY 12 HOURS INTRAVENOUS
     Route: 042
     Dates: start: 20061003
  2. VANCOMYCIN [Suspect]
     Indication: CELLULITIS
     Dosage: 1000MG EVERY 12 HOURS INTRAVENOUS
     Route: 042
     Dates: start: 20061003

REACTIONS (1)
  - RED MAN SYNDROME [None]
